FAERS Safety Report 7609276-0 (Version None)
Quarter: 2011Q3

REPORT INFORMATION
  Report Type: 
  Country: None (occurrence: None)
  Receive Date: 20110714
  Receipt Date: 20110712
  Transmission Date: 20111222
  Serious: Yes (Other)
  Sender: FDA-Public Use
  Company Number: PH-PFIZER INC-2010092915

PATIENT
  Age: 60 Year
  Sex: Female

DRUGS (1)
  1. MINIDIAB [Suspect]
     Dosage: 10 MG, 1X/DAY
     Dates: start: 20090101

REACTIONS (1)
  - BLOOD GLUCOSE INCREASED [None]
